FAERS Safety Report 4522375-5 (Version None)
Quarter: 2004Q4

REPORT INFORMATION
  Report Type: 
  Country: None (occurrence: None)
  Receive Date: 20041209
  Receipt Date: 20041129
  Transmission Date: 20050328
  Serious: Yes (Hospitalization)
  Sender: FDA-Public Use
  Company Number: FR-GLAXOSMITHKLINE-B0359174A

PATIENT
  Age: 4 Month

DRUGS (3)
  1. DEROXAT [Suspect]
  2. BROMAZEPAM [Suspect]
  3. DOXYLAMINE [Suspect]

REACTIONS (2)
  - COMA [None]
  - DRUG TOXICITY [None]
